FAERS Safety Report 15930753 (Version 1)
Quarter: 2019Q1

REPORT INFORMATION
  Report Type: Report from Study
  Country: IT (occurrence: IT)
  Receive Date: 20190207
  Receipt Date: 20190207
  Transmission Date: 20190417
  Serious: Yes (Hospitalization)
  Sender: FDA-Public Use
  Company Number: IT-AXELLIA-002213

PATIENT

DRUGS (1)
  1. COLISTIN [Suspect]
     Active Substance: COLISTIN
     Indication: INFECTION

REACTIONS (2)
  - Acinetobacter test positive [Unknown]
  - Drug resistance [Unknown]
